FAERS Safety Report 7561304-7 (Version None)
Quarter: 2011Q2

REPORT INFORMATION
  Report Type: 
  Country: None (occurrence: None)
  Receive Date: 20110621
  Receipt Date: 20101008
  Transmission Date: 20111010
  Serious: No
  Sender: FDA-Public Use
  Company Number: US-ASTRAZENECA-2010SE47611

PATIENT
  Age: 47 Year
  Sex: Female

DRUGS (3)
  1. PULMICORT FLEXHALER [Suspect]
     Indication: ASTHMA
     Dosage: 180 UG TWO PUFFS, TWICE A DAY
     Route: 055
     Dates: start: 20101007
  2. PROAIR HFA [Concomitant]
  3. SINGULAIR [Concomitant]

REACTIONS (1)
  - CHEST DISCOMFORT [None]
